FAERS Safety Report 6262242-2 (Version None)
Quarter: 2009Q3

REPORT INFORMATION
  Report Type: 
  Country: None (occurrence: None)
  Receive Date: 20090709
  Receipt Date: 20090629
  Transmission Date: 20100115
  Serious: Yes (Death, Hospitalization)
  Sender: FDA-Public Use
  Company Number: JP-AMGEN-US210344

PATIENT
  Sex: Female
  Weight: 53 kg

DRUGS (8)
  1. ENBREL [Suspect]
     Indication: RHEUMATOID ARTHRITIS
     Route: 058
     Dates: start: 20070105, end: 20070302
  2. TEGRETOL [Concomitant]
     Indication: PYODERMA GANGRENOSUM
     Route: 048
     Dates: start: 20061128
  3. RINDERON [Concomitant]
     Indication: RHEUMATOID ARTHRITIS
     Route: 042
     Dates: start: 20061225
  4. COLCHICINE [Concomitant]
     Indication: PYODERMA GANGRENOSUM
     Route: 048
  5. CYTOTEC [Concomitant]
     Route: 048
     Dates: start: 20010614
  6. BONALON [Concomitant]
     Route: 048
     Dates: start: 20040617
  7. EVOXAC [Concomitant]
     Indication: SJOGREN'S SYNDROME
     Route: 048
     Dates: start: 20061228
  8. ALFACALCIDOL [Concomitant]
     Route: 048
     Dates: start: 20000413

REACTIONS (6)
  - BACILLUS INFECTION [None]
  - ENTEROBACTER INFECTION [None]
  - PSEUDOMONAS INFECTION [None]
  - SEPSIS [None]
  - STAPHYLOCOCCAL INFECTION [None]
  - URINARY TRACT INFECTION BACTERIAL [None]
